FAERS Safety Report 7894648-X (Version None)
Quarter: 2011Q4

REPORT INFORMATION
  Report Type: 
  Country: None (occurrence: None)
  Receive Date: 20111106
  Receipt Date: 20110817
  Transmission Date: 20120403
  Serious: No
  Sender: FDA-Public Use
  Company Number: US-AMGEN-USASP2011041919

PATIENT
  Age: 55 Year
  Sex: Female

DRUGS (1)
  1. ENBREL [Suspect]
     Indication: RHEUMATOID ARTHRITIS
     Dosage: 50 MG, QWK
     Dates: start: 20101213, end: 20110801

REACTIONS (4)
  - WHITE BLOOD CELL COUNT DECREASED [None]
  - ABDOMINAL DISTENSION [None]
  - GASTROOESOPHAGEAL REFLUX DISEASE [None]
  - URINARY TRACT INFECTION [None]
